FAERS Safety Report 5721515-X (Version None)
Quarter: 2008Q2

REPORT INFORMATION
  Report Type: 
  Country: None (occurrence: None)
  Receive Date: 20080429
  Receipt Date: 20080424
  Transmission Date: 20081010
  Serious: Yes (Hospitalization, Other)
  Sender: FDA-Public Use
  Company Number: FR-WYE-G01458408

PATIENT
  Sex: Male

DRUGS (1)
  1. ADVIL [Suspect]
     Dosage: ONE TABLET AS REQUIRED
     Route: 048
     Dates: end: 20070415

REACTIONS (4)
  - CHOLANGITIS ACUTE [None]
  - CYTOLYTIC HEPATITIS [None]
  - HEPATIC INFILTRATION EOSINOPHILIC [None]
  - PROTHROMBIN TIME RATIO DECREASED [None]
